FAERS Safety Report 11665820 (Version 1)
Quarter: 2015Q4

REPORT INFORMATION
  Report Type: Spontaneous
  Country: US (occurrence: US)
  Receive Date: 20151027
  Receipt Date: 20151027
  Transmission Date: 20160304
  Serious: No
  Sender: FDA-Public Use
  Company Number: US-ELI_LILLY_AND_COMPANY-US201001001634

PATIENT
  Sex: Female

DRUGS (2)
  1. FORTEO [Suspect]
     Active Substance: TERIPARATIDE
     Indication: OSTEOPOROSIS
     Dosage: 1 D/F, DAILY (1/D)
     Route: 065
     Dates: start: 2009, end: 2009
  2. FORTEO [Suspect]
     Active Substance: TERIPARATIDE
     Dosage: 1 D/F, DAILY (1/D)
     Route: 065
     Dates: start: 2009

REACTIONS (17)
  - Arthralgia [Unknown]
  - Headache [Unknown]
  - Middle ear effusion [Unknown]
  - Ear pain [Unknown]
  - Bone disorder [Unknown]
  - Pruritus [Unknown]
  - Hypoacusis [Unknown]
  - Musculoskeletal pain [Unknown]
  - Facial pain [Unknown]
  - Ear infection [Unknown]
  - Ear injury [Unknown]
  - Joint swelling [Unknown]
  - Bone pain [Unknown]
  - Gait disturbance [Unknown]
  - Pain in extremity [Unknown]
  - Ear discomfort [Unknown]
  - Arthralgia [Unknown]

NARRATIVE: CASE EVENT DATE: 2009
